FAERS Safety Report 20006652 (Version 1)
Quarter: 2021Q4

REPORT INFORMATION
  Report Type: Spontaneous
  Country: GB (occurrence: GB)
  Receive Date: 20211028
  Receipt Date: 20211028
  Transmission Date: 20220303
  Serious: Yes (Hospitalization)
  Sender: FDA-Public Use
  Company Number: GB-MYLANLABS-2021M1070645

PATIENT
  Age: 30 Year
  Sex: Male
  Weight: 123.4 kg

DRUGS (4)
  1. CLOZARIL [Interacting]
     Active Substance: CLOZAPINE
     Indication: Schizophrenia
     Dosage: UNK
     Route: 048
     Dates: start: 20170912
  2. CLOZARIL [Interacting]
     Active Substance: CLOZAPINE
     Dosage: 350 MILLIGRAM, QD
  3. CLOZARIL [Interacting]
     Active Substance: CLOZAPINE
     Dosage: 350 MILLIGRAM, QD (OM, ON)
     Route: 048
     Dates: start: 20170912
  4. COCAINE [Interacting]
     Active Substance: COCAINE
     Indication: Product used for unknown indication
     Dosage: UNK

REACTIONS (4)
  - Antipsychotic drug level increased [Recovering/Resolving]
  - Drug interaction [Recovering/Resolving]
  - Weight decreased [Recovering/Resolving]
  - Somnolence [Not Recovered/Not Resolved]
